FAERS Safety Report 5500224-6 (Version None)
Quarter: 2007Q4

REPORT INFORMATION
  Report Type: 
  Country: None (occurrence: None)
  Receive Date: 20071025
  Receipt Date: 20071011
  Transmission Date: 20080405
  Serious: Yes (Death, Life-Threatening, Hospitalization)
  Sender: FDA-Public Use
  Company Number: 2007SP002877

PATIENT
  Age: 65 Year
  Sex: Male
  Weight: 68.0396 kg

DRUGS (20)
  1. BROVANA [Suspect]
     Indication: CHRONIC OBSTRUCTIVE PULMONARY DISEASE
     Dosage: 15 UG/2ML;BID; INHALATION
     Dates: start: 20070601, end: 20070101
  2. CIPROFLOXACIN [Concomitant]
  3. PREDNISONE TAB [Concomitant]
  4. XOPENEX [Concomitant]
  5. AVELOX [Concomitant]
  6. BRETHINE [Concomitant]
  7. DUONEB [Concomitant]
  8. ALBUTEROL SULFATE W/IPRATROPIUM BROMIDE [Concomitant]
  9. FLOVENT [Concomitant]
  10. FOSAMAX [Concomitant]
  11. KETEK [Concomitant]
  12. ATORVASTATIN CALCIUM [Concomitant]
  13. MUCINEX [Concomitant]
  14. PRAVASTATIN [Concomitant]
  15. SINGULAIR [Concomitant]
  16. TOBRAMYCIN [Concomitant]
  17. ANITBIOTICS [Concomitant]
  18. UNIPHYL [Concomitant]
  19. AMBIEN [Concomitant]
  20. TIOTROPIUM BROMIDE [Concomitant]

REACTIONS (33)
  - ALVEOLITIS [None]
  - ATRIAL CONDUCTION TIME PROLONGATION [None]
  - BACTERIAL INFECTION [None]
  - BLOOD CREATINE PHOSPHOKINASE MB INCREASED [None]
  - BLOOD PRESSURE DECREASED [None]
  - BRONCHIECTASIS [None]
  - BUNDLE BRANCH BLOCK RIGHT [None]
  - CARDIAC ARREST [None]
  - CARDIOMEGALY [None]
  - CHRONIC OBSTRUCTIVE PULMONARY DISEASE [None]
  - CLOSTRIDIUM DIFFICILE COLITIS [None]
  - CUSHINGOID [None]
  - DIARRHOEA [None]
  - DRUG LEVEL BELOW THERAPEUTIC [None]
  - GENERAL PHYSICAL HEALTH DETERIORATION [None]
  - HYPERKALAEMIA [None]
  - HYPOTENSION [None]
  - LUNG INFILTRATION [None]
  - LUNG NEOPLASM [None]
  - OCCULT BLOOD [None]
  - ORAL CANDIDIASIS [None]
  - PERICARDIAL EFFUSION [None]
  - PNEUMONIA [None]
  - PSEUDOMONAS INFECTION [None]
  - PULMONARY GRANULOMA [None]
  - PULMONARY MYCOSIS [None]
  - RENAL FAILURE ACUTE [None]
  - RESPIRATORY FAILURE [None]
  - SINUS TACHYCARDIA [None]
  - SPUTUM CULTURE POSITIVE [None]
  - VENTRICULAR EXTRASYSTOLES [None]
  - VENTRICULAR FIBRILLATION [None]
  - VOMITING [None]
